FAERS Safety Report 24895933 (Version 1)
Quarter: 2025Q1

REPORT INFORMATION
  Report Type: Spontaneous
  Country: GB (occurrence: GB)
  Receive Date: 20250128
  Receipt Date: 20250128
  Transmission Date: 20250409
  Serious: Yes (Other)
  Sender: CIPLA
  Company Number: GB-MHRA-MED-202501131330489170-PFNCW

PATIENT

DRUGS (1)
  1. AMBRISENTAN [Suspect]
     Active Substance: AMBRISENTAN
     Indication: Pulmonary hypertension
     Dosage: 10 MILLIGRAM, QD (ONCE DAILY)
     Route: 065
     Dates: start: 20240808

REACTIONS (3)
  - Joint swelling [Unknown]
  - Adverse event [Unknown]
  - Swelling [Unknown]

NARRATIVE: CASE EVENT DATE: 20250110
